FAERS Safety Report 7560978-4 (Version None)
Quarter: 2011Q2

REPORT INFORMATION
  Report Type: 
  Country: None (occurrence: None)
  Receive Date: 20110621
  Receipt Date: 20110615
  Transmission Date: 20111010
  Serious: Yes (Hospitalization)
  Sender: FDA-Public Use
  Company Number: DE-GILEAD-E2B_00001205

PATIENT
  Sex: Female
  Weight: 79 kg

DRUGS (3)
  1. AZATHIOPRINE [Suspect]
     Dates: start: 20010701, end: 20010801
  2. AMBRISENTAN [Suspect]
     Indication: PULMONARY ARTERIAL HYPERTENSION
     Route: 048
     Dates: start: 20090501, end: 20110401
  3. ACETAMINOPHEN [Concomitant]

REACTIONS (6)
  - HEPATIC STEATOSIS [None]
  - PULMONARY FIBROSIS [None]
  - TRANSAMINASES INCREASED [None]
  - CHOLESTASIS [None]
  - BLOOD BILIRUBIN INCREASED [None]
  - BLOOD ALKALINE PHOSPHATASE ABNORMAL [None]
